FAERS Safety Report 23368245 (Version 1)
Quarter: 2024Q1

REPORT INFORMATION
  Report Type: Spontaneous
  Country: FR (occurrence: FR)
  Receive Date: 20240105
  Receipt Date: 20240105
  Transmission Date: 20240409
  Serious: Yes (Hospitalization)
  Sender: FDA-Public Use
  Company Number: None

PATIENT
  Age: 7 Year
  Sex: Female
  Weight: 26 kg

DRUGS (5)
  1. AMOXICILLIN [Suspect]
     Active Substance: AMOXICILLIN
     Indication: Tonsillitis streptococcal
     Dosage: 900 MG, Q8H
     Route: 042
     Dates: start: 20230306, end: 20230311
  2. AZATHIOPRINE [Suspect]
     Active Substance: AZATHIOPRINE
     Indication: Crohn^s disease
     Dosage: 50 MG, QD
     Route: 048
     Dates: start: 202204, end: 20230306
  3. MAXILASE [Suspect]
     Active Substance: PANCRELIPASE
     Indication: Tonsillitis streptococcal
     Dosage: 10 DF, Q8H
     Route: 042
     Dates: start: 20230306, end: 20230311
  4. ACETAMINOPHEN [Suspect]
     Active Substance: ACETAMINOPHEN
     Indication: Antipyresis
     Dosage: 400 MG, Q6H
     Route: 042
     Dates: start: 20230307, end: 20230309
  5. REMICADE [Suspect]
     Active Substance: INFLIXIMAB
     Indication: Crohn^s disease
     Dosage: 120 MG
     Route: 042
     Dates: start: 202204

REACTIONS (1)
  - Hepatic cytolysis [Recovering/Resolving]

NARRATIVE: CASE EVENT DATE: 20230309
